FAERS Safety Report 18951897 (Version 1)
Quarter: 2021Q1

REPORT INFORMATION
  Report Type: Spontaneous
  Country: US (occurrence: US)
  Receive Date: 20210301
  Receipt Date: 20210301
  Transmission Date: 20210420
  Serious: No
  Sender: FDA-Public Use
  Company Number: US-DRREDDYS-USA/USA/21/0131939

PATIENT
  Age: 16 Year
  Sex: Female

DRUGS (1)
  1. ZENATANE [Suspect]
     Active Substance: ISOTRETINOIN
     Indication: PRODUCT USED FOR UNKNOWN INDICATION
     Dosage: RMA ISSUE DATE: 1/6/2021 2:45:38 PM
     Route: 048
     Dates: end: 20210121

REACTIONS (3)
  - Urine bilirubin decreased [Unknown]
  - Vomiting [Unknown]
  - Protein urine present [Unknown]

NARRATIVE: CASE EVENT DATE: 202101
